FAERS Safety Report 23814118 (Version 2)
Quarter: 2024Q3

REPORT INFORMATION
  Report Type: Spontaneous
  Country: JP (occurrence: JP)
  Receive Date: 20240503
  Receipt Date: 20240717
  Transmission Date: 20241017
  Serious: Yes (Life-Threatening, Hospitalization, Other)
  Sender: MERCK
  Company Number: JP-MSD-2404JPN001532J

PATIENT
  Age: 80 Year
  Sex: Male

DRUGS (2)
  1. BRIDION [Suspect]
     Active Substance: SUGAMMADEX
     Indication: Neuromuscular blockade reversal
     Dosage: UNK
     Route: 042
     Dates: start: 20240322
  2. ROCURONIUM BROMIDE [Concomitant]
     Active Substance: ROCURONIUM BROMIDE
     Dosage: UNK
     Route: 065
     Dates: start: 20240322

REACTIONS (4)
  - Hypoxic-ischaemic encephalopathy [Not Recovered/Not Resolved]
  - Cardiac arrest [Unknown]
  - Recurrence of neuromuscular blockade [Unknown]
  - Underdose [Unknown]

NARRATIVE: CASE EVENT DATE: 20240322
